FAERS Safety Report 8453116-7 (Version None)
Quarter: 2012Q2

REPORT INFORMATION
  Report Type: 
  Country: None (occurrence: None)
  Receive Date: 20120620
  Receipt Date: 20120507
  Transmission Date: 20120825
  Serious: No
  Sender: FDA-Public Use
  Company Number: US-VERTEX PHARMACEUTICALS INC.-AE-2012-006648

PATIENT
  Sex: Female
  Weight: 47.216 kg

DRUGS (5)
  1. RIBAVIRIN [Concomitant]
     Route: 048
     Dates: start: 20120503
  2. INCIVEK [Suspect]
     Indication: HEPATITIS C
     Route: 048
     Dates: start: 20120320
  3. RIBAVIRIN [Concomitant]
     Indication: HEPATITIS C
     Route: 048
     Dates: start: 20120320
  4. PEGASYS [Concomitant]
     Indication: HEPATITIS C
     Dates: start: 20120320
  5. RIBAVIRIN [Concomitant]
     Route: 048
     Dates: start: 20120423

REACTIONS (1)
  - ANAEMIA [None]
